FAERS Safety Report 18347480 (Version 1)
Quarter: 2020Q4

REPORT INFORMATION
  Report Type: Spontaneous
  Country: US (occurrence: US)
  Receive Date: 20201006
  Receipt Date: 20201006
  Transmission Date: 20210114
  Serious: Yes (Death, Other)
  Sender: FDA-Public Use
  Company Number: US-B.I. PHARMACEUTICALS,INC./RIDGEFIELD-2020-BI-052660

PATIENT
  Sex: Male

DRUGS (1)
  1. GILOTRIF [Suspect]
     Active Substance: AFATINIB
     Indication: LUNG NEOPLASM MALIGNANT
     Dosage: 30MG QD
     Dates: start: 201408

REACTIONS (3)
  - Lung neoplasm malignant [Fatal]
  - Treatment noncompliance [Unknown]
  - Metastases to central nervous system [Fatal]

NARRATIVE: CASE EVENT DATE: 202005
